FAERS Safety Report 9920060 (Version 2)
Quarter: 2014Q1

REPORT INFORMATION
  Report Type: Report from Study
  Country: AU (occurrence: AU)
  Receive Date: 20140224
  Receipt Date: 20140224
  Transmission Date: 20141002
  Serious: Yes (Death, Hospitalization, Other)
  Sender: FDA-Public Use
  Company Number: PHHY2013AU126993

PATIENT
  Age: 51 Year
  Sex: Male

DRUGS (20)
  1. CLOZARIL [Suspect]
     Dosage: 375 MG, AT NIGHT
     Dates: start: 19941018
  2. LITHIUM CARBONATE [Concomitant]
     Dosage: 750 MG, (500 MG MANE AND 750 MG NOCTE)
  3. LITHIUM CARBONATE [Concomitant]
     Dosage: 750 MG, (500 MG MANE AND 250 MG NOCTE)
  4. PANTOPRAZOLE [Concomitant]
     Dosage: 40 MG, MANE
  5. ASPIRIN [Concomitant]
     Dosage: 100 MG, MANE
  6. ATORVASTATIN [Concomitant]
     Dosage: 20 MG, MANE
  7. BENZHEXOL [Concomitant]
     Dosage: 5 MG, TID
  8. LORAZEPAM [Concomitant]
     Dosage: 1 MG, TID
  9. LORAZEPAM [Concomitant]
     Dosage: 1 TO 2MG, BID PRN
  10. OLANZAPINE [Concomitant]
     Dosage: 5 TO 10MG, BID PRN
  11. METRONIDAZOLE [Concomitant]
     Dosage: 500 MG, TID
     Route: 042
  12. GENTAMICIN [Concomitant]
     Dosage: 240 TO 320 MG, DAILY
     Route: 042
  13. CEPHAZOLIN [Concomitant]
     Dosage: 1 G, TID
     Route: 042
  14. HEPARIN [Concomitant]
     Dosage: 5000 U, BID
     Route: 058
  15. FENTANYL [Concomitant]
     Dosage: 25 UG, Q3H PRN
     Route: 058
  16. BUPRENORPHINE [Concomitant]
     Dosage: 200 TO 400 MG, Q6H PRN
     Route: 060
  17. ADRENALINE [Concomitant]
     Dosage: 11 ML, UNK
     Route: 042
  18. SODIBIC [Concomitant]
     Dosage: 8.4 G, UNK
     Route: 042
  19. CALCIUM GLUCONATE [Concomitant]
     Dosage: 2.2 MMOL, UNK
     Route: 042
  20. ANTIBIOTICS [Concomitant]
     Dosage: UNK
     Route: 042

REACTIONS (46)
  - Cardiac arrest [Fatal]
  - Unresponsive to stimuli [Unknown]
  - Intestinal obstruction [Unknown]
  - Gastrointestinal stoma complication [Recovering/Resolving]
  - Hernia [Unknown]
  - Pneumoperitoneum [Unknown]
  - Aspartate aminotransferase increased [Unknown]
  - Obsessive-compulsive disorder [Unknown]
  - Activated partial thromboplastin time prolonged [Unknown]
  - Base excess decreased [Unknown]
  - Blood albumin decreased [Unknown]
  - Blood bicarbonate decreased [Unknown]
  - Blood calcium decreased [Unknown]
  - Blood chloride increased [Unknown]
  - Blood creatinine increased [Unknown]
  - Blood fibrinogen increased [Unknown]
  - Blood lactate dehydrogenase decreased [Unknown]
  - Blood lactate dehydrogenase increased [Unknown]
  - Blood magnesium decreased [Recovered/Resolved]
  - Blood phosphorus increased [Unknown]
  - Blood potassium increased [Unknown]
  - Blood sodium increased [Unknown]
  - Blood urea increased [Unknown]
  - Urine output decreased [Unknown]
  - Blood uric acid decreased [Unknown]
  - Calcium ionised decreased [Unknown]
  - Globulins decreased [Unknown]
  - Glomerular filtration rate decreased [Unknown]
  - Haematocrit decreased [Unknown]
  - Haemoglobin increased [Unknown]
  - International normalised ratio increased [Unknown]
  - Mean cell volume increased [Unknown]
  - Oxygen saturation increased [Unknown]
  - PCO2 decreased [Unknown]
  - PO2 increased [Unknown]
  - Protein total decreased [Unknown]
  - Prothrombin time prolonged [Unknown]
  - Red blood cell count decreased [Unknown]
  - Alanine aminotransferase increased [Unknown]
  - Blood osmolarity increased [Recovered/Resolved]
  - Blood creatine phosphokinase increased [Unknown]
  - Blood alkaline phosphatase decreased [Unknown]
  - White blood cell count increased [Unknown]
  - Lymphocyte count increased [Unknown]
  - Neutrophil count increased [Unknown]
  - Monocyte count increased [Unknown]
